FAERS Safety Report 8380087-4 (Version None)
Quarter: 2012Q2

REPORT INFORMATION
  Report Type: 
  Country: None (occurrence: None)
  Receive Date: 20120523
  Receipt Date: 20120515
  Transmission Date: 20120825
  Serious: Yes (Hospitalization)
  Sender: FDA-Public Use
  Company Number: NL-GLAXOSMITHKLINE-B0797387A

PATIENT
  Sex: Male
  Weight: 70 kg

DRUGS (2)
  1. PAZOPANIB [Suspect]
     Indication: NEOPLASM
     Route: 048
     Dates: start: 20120306
  2. IFOSFAMIDE [Suspect]
     Indication: NEOPLASM
     Route: 042
     Dates: start: 20120220

REACTIONS (1)
  - MALAISE [None]
